FAERS Safety Report 6616153-0 (Version None)
Quarter: 2010Q1

REPORT INFORMATION
  Report Type: 
  Country: None (occurrence: None)
  Receive Date: 20100305
  Receipt Date: 20100222
  Transmission Date: 20100710
  Serious: Yes (Hospitalization)
  Sender: FDA-Public Use
  Company Number: JP-PFIZER INC-2010019056

PATIENT
  Age: 60 Year
  Sex: Female
  Weight: 37.6 kg

DRUGS (7)
  1. CHAMPIX [Suspect]
     Indication: SMOKING CESSATION THERAPY
     Dosage: 0.5 MG, 1X/DAY
     Route: 048
     Dates: start: 20091204
  2. CHAMPIX [Suspect]
     Dosage: UNK
     Dates: end: 20100125
  3. NORVASC [Concomitant]
     Dosage: UNK
     Route: 048
  4. OLMETEC [Concomitant]
     Dosage: UNK
     Route: 048
     Dates: start: 20080101
  5. PROMAC /JPN/ [Concomitant]
     Route: 048
     Dates: start: 20090911, end: 20100125
  6. LAFUTIDINE [Concomitant]
     Route: 048
     Dates: start: 20090911, end: 20100125
  7. URSODEOXYCHOLIC ACID [Concomitant]
     Dosage: UNK
     Route: 048
     Dates: start: 20091207

REACTIONS (1)
  - HEPATIC FUNCTION ABNORMAL [None]
